FAERS Safety Report 16449593 (Version 1)
Quarter: 2019Q2

REPORT INFORMATION
  Report Type: Spontaneous
  Country: US (occurrence: US)
  Receive Date: 20190619
  Receipt Date: 20190619
  Transmission Date: 20190711
  Serious: No
  Sender: FDA-Public Use
  Company Number: US-TEVA-2019-US-1054751

PATIENT
  Age: 87 Year
  Sex: Female

DRUGS (1)
  1. VENLAFAXINE [Suspect]
     Active Substance: VENLAFAXINE HYDROCHLORIDE
     Indication: ANXIETY
     Dosage: 25 MILLIGRAM DAILY; 25 MG ONCE A DAY AT NIGHT

REACTIONS (2)
  - Nightmare [Not Recovered/Not Resolved]
  - Wrong technique in product usage process [Unknown]
